FAERS Safety Report 10073078 (Version 1)
Quarter: 2014Q2

REPORT INFORMATION
  Report Type: Spontaneous
  Country: HR (occurrence: HR)
  Receive Date: 20140411
  Receipt Date: 20140411
  Transmission Date: 20141212
  Serious: Yes (Other)
  Sender: FDA-Public Use
  Company Number: HR-TEVA-474343ISR

PATIENT
  Age: 69 Year
  Sex: Male
  Weight: 91 kg

DRUGS (1)
  1. SINERSUL [Suspect]
     Indication: URINARY TRACT INFECTION
     Dosage: 4 DOSAGE FORMS DAILY; 480 MG; 2X2, DF = 400 MG SULFAMETHOXAZOLE, 80 MG TRIMETHOPRIM
     Route: 048
     Dates: start: 20140317, end: 20140318

REACTIONS (2)
  - Swelling face [Recovered/Resolved]
  - Genital swelling [Recovered/Resolved]
